FAERS Safety Report 6234308-4 (Version None)
Quarter: 2009Q2

REPORT INFORMATION
  Report Type: 
  Country: None (occurrence: None)
  Receive Date: 20090618
  Receipt Date: 20090506
  Transmission Date: 20091009
  Serious: No
  Sender: FDA-Public Use
  Company Number: US-BRISTOL-MYERS SQUIBB COMPANY-14609507

PATIENT
  Age: 15 Year
  Sex: Female

DRUGS (5)
  1. ABILIFY [Suspect]
     Indication: SOMATIC HALLUCINATION
     Route: 048
  2. CELEXA [Suspect]
  3. KLONOPIN [Suspect]
  4. NEURONTIN [Suspect]
  5. LITHIUM CARBONATE [Suspect]

REACTIONS (1)
  - MENTAL DISORDER [None]
